FAERS Safety Report 16240903 (Version 2)
Quarter: 2019Q3

REPORT INFORMATION
  Report Type: Spontaneous
  Country: US (occurrence: US)
  Receive Date: 20190425
  Receipt Date: 20190701
  Transmission Date: 20191004
  Serious: Yes (Other)
  Sender: FDA-Public Use
  Company Number: US-AKORN PHARMACEUTICALS-2019AKN00833

PATIENT
  Age: 30 Year
  Sex: Female

DRUGS (2)
  1. MYORISAN [Suspect]
     Active Substance: ISOTRETINOIN
     Dosage: 30 MG, 2X/DAY
     Dates: start: 20190204, end: 20190406
  2. TRI-LO BIRTH CONTROL PILLS [Concomitant]

REACTIONS (2)
  - Exposure during pregnancy [Recovered/Resolved]
  - Abortion induced [Recovered/Resolved]

NARRATIVE: CASE EVENT DATE: 20190322
